FAERS Safety Report 14246713 (Version 8)
Quarter: 2018Q2

REPORT INFORMATION
  Report Type: Spontaneous
  Country: US (occurrence: US)
  Receive Date: 20171204
  Receipt Date: 20180625
  Transmission Date: 20180711
  Serious: No
  Sender: FDA-Public Use
  Company Number: US-PFIZER INC-2017513451

PATIENT
  Age: 66 Year
  Sex: Female

DRUGS (1)
  1. IBRANCE [Suspect]
     Active Substance: PALBOCICLIB
     Dosage: 100 MG, UNK

REACTIONS (14)
  - Oral pain [Unknown]
  - Pain [Unknown]
  - Headache [Unknown]
  - Weight decreased [Unknown]
  - Oral disorder [Unknown]
  - Middle insomnia [Unknown]
  - Insomnia [Unknown]
  - Alopecia [Unknown]
  - Hepatic enzyme abnormal [Unknown]
  - Pain in jaw [Unknown]
  - Tumour marker increased [Unknown]
  - Neoplasm progression [Unknown]
  - Cerebral disorder [Unknown]
  - Bone pain [Unknown]
